FAERS Safety Report 22143500 (Version 2)
Quarter: 2023Q2

REPORT INFORMATION
  Report Type: Spontaneous
  Country: DE (occurrence: DE)
  Receive Date: 20230327
  Receipt Date: 20230411
  Transmission Date: 20230722
  Serious: Yes (Other)
  Sender: FDA-Public Use
  Company Number: DE-BRISTOL-MYERS SQUIBB COMPANY-2023-033497

PATIENT
  Age: 73 Year
  Sex: Female

DRUGS (11)
  1. CYTARABINE [Suspect]
     Active Substance: CYTARABINE
     Indication: Acute myeloid leukaemia
     Dosage: UNK
     Route: 065
  2. ONUREG [Suspect]
     Active Substance: AZACITIDINE
     Indication: Acute myeloid leukaemia
     Dosage: 300 MILLIGRAM, QD (EVERY FROM DAY 1-14)
     Route: 048
     Dates: start: 202206
  3. ONUREG [Suspect]
     Active Substance: AZACITIDINE
     Dosage: 300 MILLIGRAM, QD (EVERY FROM DAY 1-14)
     Route: 048
     Dates: start: 20220725, end: 20220807
  4. ONUREG [Suspect]
     Active Substance: AZACITIDINE
     Dosage: 300 MILLIGRAM, QD (EVERY FROM DAY 1-14)
     Route: 048
     Dates: start: 20220822, end: 20220904
  5. ONUREG [Suspect]
     Active Substance: AZACITIDINE
     Dosage: 300 MILLIGRAM, QD (EVERY FROM DAY 1-14)
     Route: 048
     Dates: start: 20220919, end: 20221002
  6. MIDOSTAURIN [Suspect]
     Active Substance: MIDOSTAURIN
     Indication: Acute myeloid leukaemia
     Dosage: UNK
     Route: 065
  7. HYDROXYUREA [Suspect]
     Active Substance: HYDROXYUREA
     Indication: Acute myeloid leukaemia
     Dosage: UNK
     Route: 065
  8. DAUNORUBICIN [Suspect]
     Active Substance: DAUNORUBICIN
     Indication: Acute myeloid leukaemia
     Dosage: UNK
     Route: 065
  9. SHINGRIX [Concomitant]
     Active Substance: RECOMBINANT VARICELLA ZOSTER VIRUS (VZV) GLYCOPROTEIN E
     Indication: Immunisation
     Dosage: UNK
     Route: 065
  10. ACYCLOVIR [Concomitant]
     Active Substance: ACYCLOVIR
     Indication: Prophylaxis
     Dosage: 400 MILLIGRAM, 0.33 DAY
     Route: 065
     Dates: start: 202110
  11. COTRIMOXAZOLE [Concomitant]
     Active Substance: SULFAMETHOXAZOLE\TRIMETHOPRIM
     Indication: Prophylaxis
     Dosage: 960 MILLIGRAM, 0.33 WEEK
     Route: 065
     Dates: start: 202110

REACTIONS (5)
  - Thrombocytopenia [Unknown]
  - Neutropenia [Recovered/Resolved]
  - Diarrhoea [Recovered/Resolved]
  - Constipation [Recovered/Resolved]
  - Nausea [Recovering/Resolving]

NARRATIVE: CASE EVENT DATE: 20220601
